FAERS Safety Report 17863509 (Version 3)
Quarter: 2021Q2

REPORT INFORMATION
  Report Type: Spontaneous
  Country: NL (occurrence: NL)
  Receive Date: 20200604
  Receipt Date: 20210529
  Transmission Date: 20210717
  Serious: Yes (Hospitalization, Other)
  Sender: FDA-Public Use
  Company Number: NL-AUROBINDO-AUR-APL-2020-027091

PATIENT
  Age: 79 Year
  Sex: Female
  Weight: 67 kg

DRUGS (4)
  1. PREGABALIN. [Suspect]
     Active Substance: PREGABALIN
     Indication: PRODUCT USED FOR UNKNOWN INDICATION
     Dosage: UNK
     Route: 065
  2. TRAMADOL. [Suspect]
     Active Substance: TRAMADOL
     Indication: PRODUCT USED FOR UNKNOWN INDICATION
     Dosage: UNK
     Route: 065
  3. JAKAVI [Suspect]
     Active Substance: RUXOLITINIB
     Dosage: 10 MILLIGRAM, TWO TIMES A DAY (20 MG ONCE A DAY)
     Route: 048
     Dates: start: 20180921
  4. JAKAVI [Suspect]
     Active Substance: RUXOLITINIB
     Indication: POLYCYTHAEMIA VERA
     Dosage: UNK
     Route: 065

REACTIONS (4)
  - Delirium [Recovered/Resolved with Sequelae]
  - Dehydration [Unknown]
  - Renal failure [Unknown]
  - Varicella zoster virus infection [Recovered/Resolved with Sequelae]

NARRATIVE: CASE EVENT DATE: 20200404
